FAERS Safety Report 7955482-5 (Version None)
Quarter: 2011Q4

REPORT INFORMATION
  Report Type: 
  Country: None (occurrence: None)
  Receive Date: 20111202
  Receipt Date: 20111128
  Transmission Date: 20120403
  Serious: Yes (Hospitalization)
  Sender: FDA-Public Use
  Company Number: KR-ABBOTT-11P-090-0875118-00

PATIENT
  Sex: Female
  Weight: 788 kg

DRUGS (10)
  1. EPOKINE [Concomitant]
     Indication: PRODUCT USED FOR UNKNOWN INDICATION
     Dosage: ONCE/DAY WHEN DIALYSIS
     Route: 058
  2. STILLEN [Concomitant]
     Indication: PRODUCT USED FOR UNKNOWN INDICATION
     Route: 048
  3. ALLOPURINOL [Concomitant]
     Indication: PRODUCT USED FOR UNKNOWN INDICATION
     Dosage: 1/2 TABLET
     Route: 048
  4. ZEMPLAR [Suspect]
     Indication: BLOOD CALCIUM ABNORMAL
     Dosage: 3 TIMES PER WEEK DURING DIALYSIS
     Route: 042
     Dates: start: 20090210
  5. PHOSBINE [Concomitant]
     Indication: PRODUCT USED FOR UNKNOWN INDICATION
     Route: 048
  6. OMACOR [Concomitant]
     Indication: PRODUCT USED FOR UNKNOWN INDICATION
     Route: 048
  7. ASPIRIN [Concomitant]
     Indication: PRODUCT USED FOR UNKNOWN INDICATION
     Route: 048
  8. TORSEMIDE [Concomitant]
     Indication: PRODUCT USED FOR UNKNOWN INDICATION
     Route: 048
  9. LIPITOR [Concomitant]
     Indication: PRODUCT USED FOR UNKNOWN INDICATION
     Route: 048
  10. VENOFERRUM [Concomitant]
     Indication: PRODUCT USED FOR UNKNOWN INDICATION
     Dosage: ONCE/DAY WHEN DIALYSIS
     Route: 042

REACTIONS (1)
  - HAEMATURIA [None]
